FAERS Safety Report 9383709 (Version 2)
Quarter: 2013Q3

REPORT INFORMATION
  Report Type: Spontaneous
  Country: US (occurrence: US)
  Receive Date: 20130704
  Receipt Date: 20130709
  Transmission Date: 20140515
  Serious: Yes (Death)
  Sender: FDA-Public Use
  Company Number: US-PFIZER INC-2013197589

PATIENT
  Age: 63 Year
  Sex: Male

DRUGS (2)
  1. RAPAMUNE [Suspect]
     Indication: CARDIAC DISORDER
     Dosage: 1 MG, UNK
     Dates: start: 20110328
  2. RAPAMUNE [Suspect]
     Dosage: 1 MG, UNK
     Dates: start: 20120907

REACTIONS (3)
  - Pulmonary hypertension [Fatal]
  - Right ventricular failure [Fatal]
  - Off label use [Unknown]
